FAERS Safety Report 15705384 (Version 1)
Quarter: 2018Q4

REPORT INFORMATION
  Report Type: Spontaneous
  Country: SG (occurrence: SG)
  Receive Date: 20181210
  Receipt Date: 20181210
  Transmission Date: 20190205
  Serious: Yes (Other)
  Sender: FDA-Public Use
  Company Number: SG-MYLANLABS-2018M1089471

PATIENT
  Sex: Male

DRUGS (5)
  1. SALINE                             /00075401/ [Concomitant]
     Active Substance: SODIUM CHLORIDE
     Indication: PROPHYLAXIS
     Route: 042
  2. ASCORBIC ACID. [Concomitant]
     Active Substance: ASCORBIC ACID
     Indication: PROPHYLAXIS
     Route: 048
  3. POLYMYXIN B. [Suspect]
     Active Substance: POLYMYXIN B
     Dosage: MAINTENANCE DOSE CONTINUOUS INFUSION OVER 12 HOURS
     Route: 041
  4. TIGECYCLINE. [Concomitant]
     Active Substance: TIGECYCLINE
     Indication: ACINETOBACTER INFECTION
     Dosage: LOADING DOSE
     Route: 042
  5. POLYMYXIN B. [Suspect]
     Active Substance: POLYMYXIN B
     Indication: ACINETOBACTER INFECTION
     Dosage: LOADING DOSE
     Route: 042

REACTIONS (1)
  - Acute kidney injury [Recovered/Resolved]
